FAERS Safety Report 15841675 (Version 2)
Quarter: 2020Q2

REPORT INFORMATION
  Report Type: Spontaneous
  Country: CA (occurrence: CA)
  Receive Date: 20190118
  Receipt Date: 20200529
  Transmission Date: 20200713
  Serious: Yes (Life-Threatening, Other)
  Sender: FDA-Public Use
  Company Number: CA-ASTRAZENECA-2019SE06696

PATIENT
  Sex: Female

DRUGS (2)
  1. RANITIDINE. [Concomitant]
     Active Substance: RANITIDINE
  2. LOSEC [Suspect]
     Active Substance: OMEPRAZOLE
     Route: 048
     Dates: end: 2016

REACTIONS (14)
  - Asthenia [Unknown]
  - Gastrooesophageal reflux disease [Unknown]
  - Dry eye [Unknown]
  - Pollakiuria [Unknown]
  - Bone density decreased [Unknown]
  - Poor quality sleep [Unknown]
  - Infection [Unknown]
  - Gastric disorder [Unknown]
  - Appetite disorder [Unknown]
  - Bone disorder [Unknown]
  - General physical health deterioration [Unknown]
  - Chest pain [Unknown]
  - Sinus disorder [Unknown]
  - Dry mouth [Unknown]
